FAERS Safety Report 13377818 (Version 4)
Quarter: 2018Q3

REPORT INFORMATION
  Report Type: Spontaneous
  Country: US (occurrence: US)
  Receive Date: 20170328
  Receipt Date: 20180822
  Transmission Date: 20181010
  Serious: Yes (Other)
  Sender: FDA-Public Use
  Company Number: US-PFIZER INC-2017132120

PATIENT
  Age: 8 Year
  Sex: Female

DRUGS (6)
  1. GENOTROPIN [Suspect]
     Active Substance: SOMATROPIN
     Indication: DWARFISM
     Dosage: 2.2 MG, DAILY
     Route: 058
     Dates: start: 20160801
  2. GENOTROPIN [Suspect]
     Active Substance: SOMATROPIN
     Indication: TURNER^S SYNDROME
     Dosage: 2 MG, DAILY
     Route: 058
  3. LEVOTHROID [Concomitant]
     Active Substance: LEVOTHYROXINE SODIUM
     Indication: HYPOTHYROIDISM
     Dosage: 50 UG, DAILY
     Route: 048
  4. GENOTROPIN [Suspect]
     Active Substance: SOMATROPIN
     Indication: GROWTH HORMONE DEFICIENCY
     Dosage: 2.4 MG, DAILY
     Route: 058
     Dates: start: 201302
  5. SYNTHROID [Concomitant]
     Active Substance: LEVOTHYROXINE SODIUM
     Indication: HYPOTHYROIDISM
     Dosage: 50 UG, DAILY
     Route: 048
  6. GENOTROPIN [Suspect]
     Active Substance: SOMATROPIN
     Indication: HYPOPITUITARISM
     Dosage: 2.4 MG, DAILY
     Route: 058
     Dates: start: 20170213

REACTIONS (10)
  - Blood triglycerides increased [Unknown]
  - Pain [Unknown]
  - Blood thyroid stimulating hormone increased [Unknown]
  - Acanthosis [Unknown]
  - High density lipoprotein decreased [Unknown]
  - Weight increased [Unknown]
  - Drug dose omission [Unknown]
  - Pulse abnormal [Unknown]
  - Non-high-density lipoprotein cholesterol increased [Unknown]
  - Blood insulin increased [Unknown]

NARRATIVE: CASE EVENT DATE: 201602
